FAERS Safety Report 9119427 (Version 5)
Quarter: 2013Q3

REPORT INFORMATION
  Report Type: Spontaneous
  Country: US (occurrence: US)
  Receive Date: 20130207
  Receipt Date: 20130805
  Transmission Date: 20140515
  Serious: Yes (Hospitalization, Other)
  Sender: FDA-Public Use
  Company Number: US-009507513-1203USA00034

PATIENT
  Sex: Female
  Weight: 75.74 kg

DRUGS (7)
  1. FOSAMAX [Suspect]
     Indication: OSTEOPENIA
     Dosage: 10 MG, UNK
     Route: 048
     Dates: start: 20000327, end: 200111
  2. FOSAMAX [Suspect]
     Indication: OSTEOPOROSIS
     Dosage: 70 MG, QW
     Route: 048
     Dates: start: 20011217, end: 200803
  3. ALENDRONATE SODIUM [Suspect]
     Indication: OSTEOPENIA
     Dosage: 70 MG, QW
     Route: 048
     Dates: start: 20080313, end: 200912
  4. MIDRIN [Concomitant]
     Indication: MIGRAINE
  5. PREMARIN [Concomitant]
     Indication: HORMONE REPLACEMENT THERAPY
  6. PROVERA [Concomitant]
     Indication: HORMONE REPLACEMENT THERAPY
  7. IMITREX (SUMATRIPTAN) [Concomitant]
     Indication: MIGRAINE
     Dosage: 50 MG, PRN

REACTIONS (24)
  - Femur fracture [Unknown]
  - Open reduction of fracture [Unknown]
  - Pelvic fracture [Unknown]
  - Lung infiltration [Unknown]
  - Anaemia postoperative [Unknown]
  - Transfusion [Unknown]
  - Fall [Unknown]
  - Multiple fractures [Unknown]
  - Emphysema [Unknown]
  - Hypertension [Unknown]
  - Osteoarthritis [Unknown]
  - Low turnover osteopathy [Unknown]
  - Lung disorder [Unknown]
  - Diverticulitis [Unknown]
  - Hepatic steatosis [Unknown]
  - Arteriosclerosis [Unknown]
  - Shoulder operation [Unknown]
  - Helicobacter infection [Unknown]
  - Pneumonia [Unknown]
  - Hand fracture [Unknown]
  - Sleep disorder [Unknown]
  - Pain [Unknown]
  - Gastrooesophageal reflux disease [Unknown]
  - Gastritis [Not Recovered/Not Resolved]
